FAERS Safety Report 16347426 (Version 2)
Quarter: 2019Q2

REPORT INFORMATION
  Report Type: Spontaneous
  Country: US (occurrence: US)
  Receive Date: 20190523
  Receipt Date: 20190624
  Transmission Date: 20190711
  Serious: No
  Sender: FDA-Public Use
  Company Number: US-BAYER-2019-101275

PATIENT
  Age: 60 Year
  Sex: Female
  Weight: 67.57 kg

DRUGS (12)
  1. VITAMIN D [VITAMIN D NOS] [Concomitant]
     Active Substance: VITAMIN D NOS
  2. GADAVIST [Suspect]
     Active Substance: GADOBUTROL
     Indication: COMPUTERISED TOMOGRAM HEAD
     Dosage: 7.5 ML, ONCE
     Route: 042
     Dates: start: 20190522, end: 20190522
  3. TYLENOL [Concomitant]
     Active Substance: ACETAMINOPHEN
  4. OMEPRAZOLE. [Concomitant]
     Active Substance: OMEPRAZOLE
  5. GADAVIST [Suspect]
     Active Substance: GADOBUTROL
     Indication: NEOPLASM
  6. ALCOHOL. [Concomitant]
     Active Substance: ALCOHOL
  7. VITAMIN B12 [Concomitant]
     Active Substance: CYANOCOBALAMIN
  8. SKELAXIN [METAXALONE] [Concomitant]
  9. GADAVIST [Suspect]
     Active Substance: GADOBUTROL
     Indication: DEAFNESS
  10. OXYCAL [Concomitant]
  11. CIMZIA [Concomitant]
     Active Substance: CERTOLIZUMAB PEGOL
  12. LIPITOR [Concomitant]
     Active Substance: ATORVASTATIN CALCIUM

REACTIONS (5)
  - Urticaria [Recovered/Resolved]
  - Dry throat [Recovered/Resolved]
  - Fatigue [Recovered/Resolved]
  - Eye pain [None]
  - Feeling abnormal [Recovered/Resolved]

NARRATIVE: CASE EVENT DATE: 20190522
